FAERS Safety Report 6305687-4 (Version None)
Quarter: 2009Q3

REPORT INFORMATION
  Report Type: 
  Country: None (occurrence: None)
  Receive Date: 20090807
  Receipt Date: 20090729
  Transmission Date: 20100115
  Serious: Yes (Hospitalization)
  Sender: FDA-Public Use
  Company Number: DSA_34006_2009

PATIENT
  Sex: Male
  Weight: 97.5234 kg

DRUGS (5)
  1. XENAZINE [Suspect]
     Indication: MOVEMENT DISORDER
     Dosage: (12.5 MG TID ORAL)
     Route: 048
     Dates: start: 20090609, end: 20090620
  2. MIRAPEX [Concomitant]
  3. SINEMET [Concomitant]
  4. LEXAPRO [Concomitant]
  5. METHOTREXATE [Concomitant]

REACTIONS (3)
  - FALL [None]
  - MUSCULOSKELETAL STIFFNESS [None]
  - SKELETAL INJURY [None]
